FAERS Safety Report 6682858-9 (Version None)
Quarter: 2010Q2

REPORT INFORMATION
  Report Type: 
  Country: None (occurrence: None)
  Receive Date: 20100415
  Receipt Date: 20100412
  Transmission Date: 20101027
  Serious: Yes (Hospitalization)
  Sender: FDA-Public Use
  Company Number: A0807529A

PATIENT
  Sex: Male
  Weight: 102.3 kg

DRUGS (1)
  1. AVANDAMET [Suspect]
     Dosage: 1TAB PER DAY
     Route: 048
     Dates: start: 20050102, end: 20081114

REACTIONS (1)
  - MYOCARDIAL INFARCTION [None]
